FAERS Safety Report 8785187 (Version 1)
Quarter: 2012Q4

REPORT INFORMATION
  Report Type: Spontaneous
  Country: IT (occurrence: None)
  Receive Date: 20120831
  Receipt Date: 20120831
  Transmission Date: 20130627
  Serious: Yes (Hospitalization, Other)
  Sender: FDA-Public Use
  Company Number: AVE_02189_2012

PATIENT
  Age: 75 Year
  Sex: Male

DRUGS (2)
  1. CLONIDINE [Suspect]
     Indication: CONVULSION
  2. PHENOBARBITAL [Suspect]
     Indication: CONVULSION
     Dosage: 100 mg/die

REACTIONS (1)
  - Drug reaction with eosinophilia and systemic symptoms [None]
